FAERS Safety Report 23437461 (Version 1)
Quarter: 2024Q1

REPORT INFORMATION
  Report Type: Spontaneous
  Country: US (occurrence: None)
  Receive Date: 20240123
  Receipt Date: 20240123
  Transmission Date: 20240409
  Serious: Yes (Hospitalization)
  Sender: FDA-Public Use
  Company Number: None

PATIENT
  Age: 62 Year
  Sex: Female

DRUGS (17)
  1. EVEROLIMUS [Suspect]
     Active Substance: EVEROLIMUS
     Indication: Lymphangioleiomyomatosis
     Dosage: FREQUENCY : TWICE A DAY;?
     Route: 048
     Dates: start: 20231117
  2. FAMOTIDINE [Concomitant]
     Active Substance: FAMOTIDINE
  3. POSACONAZOLE [Concomitant]
     Active Substance: POSACONAZOLE
  4. SULFAMETHOXAZOLE\TRIMETHOPRIM [Concomitant]
     Active Substance: SULFAMETHOXAZOLE\TRIMETHOPRIM
  5. AZITHROMYCIN [Concomitant]
     Active Substance: AZITHROMYCIN
  6. ROSUVASTATIN [Concomitant]
     Active Substance: ROSUVASTATIN
  7. PROPRANOLOL [Concomitant]
     Active Substance: PROPRANOLOL HYDROCHLORIDE
  8. Aspirin [Concomitant]
  9. VITAMINS [Concomitant]
     Active Substance: VITAMINS
  10. OYSTER SHELL CALCIUM WITH VITAMIN D [Concomitant]
     Active Substance: CALCIUM\CHOLECALCIFEROL
  11. ALENDRONATE [Concomitant]
     Active Substance: ALENDRONATE SODIUM
  12. Omeprrazole [Concomitant]
  13. VITAMIN D3 [Concomitant]
     Active Substance: CHOLECALCIFEROL
  14. PREDNISONE [Concomitant]
     Active Substance: PREDNISONE
  15. VALGANCICLOVIR [Concomitant]
     Active Substance: VALGANCICLOVIR
  16. TRAZODONE [Concomitant]
     Active Substance: TRAZODONE HYDROCHLORIDE
  17. LORATADINE [Concomitant]
     Active Substance: LORATADINE

REACTIONS (1)
  - Klebsiella infection [None]

NARRATIVE: CASE EVENT DATE: 20240101
